FAERS Safety Report 7213885-0 (Version None)
Quarter: 2011Q1

REPORT INFORMATION
  Report Type: 
  Country: None (occurrence: None)
  Receive Date: 20110106
  Receipt Date: 20101229
  Transmission Date: 20110831
  Serious: Yes (Other)
  Sender: FDA-Public Use
  Company Number: FR-ABBOTT-10P-056-0690627-00

PATIENT
  Sex: Male
  Weight: 55 kg

DRUGS (2)
  1. HUMIRA [Suspect]
     Indication: PSORIASIS
     Dosage: 80 MG AND THEN 40 MG EVERY OTHER WEEK
     Route: 058
  2. HUMIRA [Suspect]
     Route: 058
     Dates: start: 20090901, end: 20101101

REACTIONS (1)
  - LYMPHADENOPATHY [None]
